FAERS Safety Report 16624247 (Version 2)
Quarter: 2020Q2

REPORT INFORMATION
  Report Type: Spontaneous
  Country: CA (occurrence: CA)
  Receive Date: 20190724
  Receipt Date: 20200502
  Transmission Date: 20200713
  Serious: Yes (Hospitalization, Other)
  Sender: FDA-Public Use
  Company Number: CA-AUROBINDO-AUR-APL-2019-004127

PATIENT
  Age: 37 Year
  Sex: Male

DRUGS (3)
  1. TADALAFIL TABLET [Suspect]
     Active Substance: TADALAFIL
     Indication: SUBSTANCE USE
     Dosage: 5 MILLIGRAM, TOTAL
     Route: 048
  2. SILDENAFIL CITRATE. [Suspect]
     Active Substance: SILDENAFIL CITRATE
     Indication: SUBSTANCE USE
     Dosage: UNK, TOTAL
     Route: 048
  3. SILDENAFIL CITRATE. [Suspect]
     Active Substance: SILDENAFIL CITRATE
     Indication: SUBSTANCE USE
     Dosage: UNK
     Route: 048

REACTIONS (5)
  - Rash erythematous [Recovered/Resolved]
  - Intentional product misuse [Recovered/Resolved]
  - Fixed eruption [Recovered/Resolved]
  - Drug abuse [Unknown]
  - Eosinophil count increased [Recovered/Resolved]
